FAERS Safety Report 5988364-9 (Version None)
Quarter: 2008Q4

REPORT INFORMATION
  Report Type: 
  Country: None (occurrence: None)
  Receive Date: 20081204
  Receipt Date: 20081120
  Transmission Date: 20090506
  Serious: Yes (Hospitalization)
  Sender: FDA-Public Use
  Company Number: KV200800613

PATIENT
  Age: 71 Year
  Sex: Male

DRUGS (10)
  1. ISOSORBIDE MONONITRATE [Suspect]
     Indication: DRUG USE FOR UNKNOWN INDICATION
     Dosage: 60 MG, QD, ORAL
     Route: 048
  2. THEOPHYLLINE [Concomitant]
  3. COMBIVENT /01033501/ (IPRATROPIUM BROMIDE, SALCUTAMOL) [Concomitant]
  4. ADAVIR (FLUTICASONE PROPIONATE, SALMETEROL XINAFOATE) [Concomitant]
  5. ALBUTEROL /00139501/ (SALBUTAMOL) [Concomitant]
  6. GLYBURIDE [Concomitant]
  7. TRIAMTERENE  (TRIAMTERENE) [Concomitant]
  8. SMIVASTATIN (SIMVASTATIN) [Concomitant]
  9. PRILOSEC /00661201/ (OMEPRAZOLE) [Concomitant]
  10. GLYCOLAX (MACROGOL) [Concomitant]

REACTIONS (4)
  - CONDITION AGGRAVATED [None]
  - EMPHYSEMA [None]
  - HYPOTENSION [None]
  - PRODUCT QUALITY ISSUE [None]
